FAERS Safety Report 7508622-6 (Version None)
Quarter: 2011Q2

REPORT INFORMATION
  Report Type: 
  Country: None (occurrence: None)
  Receive Date: 20110527
  Receipt Date: 20110307
  Transmission Date: 20111010
  Serious: No
  Sender: FDA-Public Use
  Company Number: A0917400A

PATIENT
  Age: 51 Year
  Sex: Female
  Weight: 83.9 kg

DRUGS (3)
  1. TRACLEER [Concomitant]
     Dosage: 125MG TWICE PER DAY
     Route: 065
  2. FLOLAN [Suspect]
     Dates: start: 20080101
  3. COUMADIN [Concomitant]
     Dosage: 5MG PER DAY
     Route: 065

REACTIONS (2)
  - ERYTHEMA [None]
  - ILL-DEFINED DISORDER [None]
